FAERS Safety Report 6455981-1 (Version None)
Quarter: 2009Q4

REPORT INFORMATION
  Report Type: 
  Country: None (occurrence: None)
  Receive Date: 20091119
  Receipt Date: 20091112
  Transmission Date: 20100525
  Serious: Yes (Hospitalization)
  Sender: FDA-Public Use
  Company Number: 2009SP036334

PATIENT
  Age: 98 Year
  Sex: Female

DRUGS (9)
  1. DESLORATADINE [Suspect]
     Indication: DRUG USE FOR UNKNOWN INDICATION
     Dosage: 5 MG;QD;PO
     Route: 048
     Dates: start: 20090828, end: 20090910
  2. MUCOMYST [Suspect]
     Indication: DRUG USE FOR UNKNOWN INDICATION
     Dosage: 15 ML;QD;PO
     Route: 048
     Dates: start: 20090801, end: 20090910
  3. STRESAM (ETIFOXINE) [Suspect]
     Indication: DRUG USE FOR UNKNOWN INDICATION
     Dosage: 3 DF;QD;PO
     Route: 048
     Dates: start: 20090828, end: 20090907
  4. DURAGESIC-100 [Concomitant]
  5. BONIVA [Concomitant]
  6. INIPOMP [Concomitant]
  7. RAMIPRIL [Concomitant]
  8. FORLAX [Concomitant]
  9. ISKEDYL [Concomitant]

REACTIONS (6)
  - BREAST MASS [None]
  - CARDIAC MURMUR [None]
  - NASOPHARYNGITIS [None]
  - RESPIRATORY DISORDER [None]
  - STEVENS-JOHNSON SYNDROME [None]
  - TACHYCARDIA [None]
